FAERS Safety Report 6952054-6 (Version None)
Quarter: 2010Q3

REPORT INFORMATION
  Report Type: 
  Country: None (occurrence: None)
  Receive Date: 20100829
  Receipt Date: 20100426
  Transmission Date: 20110219
  Serious: No
  Sender: FDA-Public Use
  Company Number: US-ABBOTT-10P-163-0640648-00

PATIENT
  Weight: 77.18 kg

DRUGS (4)
  1. NIASPAN [Suspect]
     Indication: HYPERLIPIDAEMIA
     Dosage: AT BEDTIME
     Route: 048
     Dates: start: 20100326
  2. HIGH BLOOD PRESSURE MEDICATION [Concomitant]
     Indication: HYPERTENSION
     Dosage: TAKEN AS DIRECTED
  3. CALCIUM [Concomitant]
     Indication: MINERAL SUPPLEMENTATION
     Dosage: TAKEN AS DIRECTED
  4. ASCORBIC ACID [Concomitant]
     Indication: VITAMIN SUPPLEMENTATION
     Dosage: TAKEN AS DIRECTED

REACTIONS (1)
  - FLUSHING [None]
